FAERS Safety Report 10876545 (Version 1)
Quarter: 2015Q1

REPORT INFORMATION
  Report Type: Spontaneous
  Country: US (occurrence: US)
  Receive Date: 20150301
  Receipt Date: 20150301
  Transmission Date: 20150721
  Serious: No
  Sender: FDA-Public Use
  Company Number: US-BIOGENIDEC-2015BI015139

PATIENT
  Age: 46 Year
  Sex: Female

DRUGS (1)
  1. TECFIDERA [Suspect]
     Active Substance: DIMETHYL FUMARATE
     Indication: MULTIPLE SCLEROSIS
     Route: 048
     Dates: start: 201411

REACTIONS (6)
  - Apathy [Not Recovered/Not Resolved]
  - Hypoaesthesia [Not Recovered/Not Resolved]
  - Alopecia [Not Recovered/Not Resolved]
  - General symptom [Not Recovered/Not Resolved]
  - Eye disorder [Not Recovered/Not Resolved]
  - Depressed mood [Not Recovered/Not Resolved]

NARRATIVE: CASE EVENT DATE: 201412
